FAERS Safety Report 5208775-9 (Version None)
Quarter: 2007Q1

REPORT INFORMATION
  Report Type: 
  Country: None (occurrence: None)
  Receive Date: 20070111
  Receipt Date: 20070111
  Transmission Date: 20070707
  Serious: Yes (Life-Threatening, Other)
  Sender: FDA-Public Use
  Company Number: None

PATIENT
  Age: 62 Year
  Sex: Female
  Weight: 90.7194 kg

DRUGS (1)
  1. DOSTINEX [Suspect]
     Indication: RESTLESS LEGS SYNDROME
     Dosage: 3 MG/DAY; 1 MG/D @ 3 TIMES PO
     Route: 048
     Dates: start: 20050505, end: 20061201

REACTIONS (2)
  - GAIT DISTURBANCE [None]
  - GENERAL PHYSICAL CONDITION ABNORMAL [None]
